FAERS Safety Report 7044497-X (Version None)
Quarter: 2010Q4

REPORT INFORMATION
  Report Type: 
  Country: None (occurrence: None)
  Receive Date: 20101013
  Receipt Date: 20101013
  Transmission Date: 20110411
  Serious: No
  Sender: FDA-Public Use
  Company Number: None

PATIENT
  Age: 13 Year
  Sex: Male
  Weight: 44.9061 kg

DRUGS (3)
  1. JUNIOR STRENGTH MOTRIN [Suspect]
     Indication: PAIN
     Dosage: 3 TABS 8 HRS PO
     Route: 048
  2. JUNIOR STRENGTH MOTRIN [Suspect]
     Indication: PYREXIA
     Dosage: 3 TABS 8 HRS PO
     Route: 048
  3. JUNIOR STRENGTH MOTRIN [Suspect]

REACTIONS (1)
  - HALLUCINATION, VISUAL [None]
